FAERS Safety Report 9526309 (Version 1)
Quarter: 2013Q3

REPORT INFORMATION
  Report Type: Spontaneous
  Country: US (occurrence: US)
  Receive Date: 20130916
  Receipt Date: 20130916
  Transmission Date: 20140515
  Serious: No
  Sender: FDA-Public Use
  Company Number: US-TEVA-432068USA

PATIENT
  Age: 31 Year
  Sex: Female
  Weight: 152.09 kg

DRUGS (1)
  1. PARAGARD 380A [Suspect]
     Indication: CONTRACEPTION
     Route: 015
     Dates: start: 20130312, end: 20130910

REACTIONS (5)
  - Device expulsion [Recovered/Resolved]
  - Abdominal pain [Unknown]
  - Pelvic pain [Unknown]
  - Vomiting [Unknown]
  - Metrorrhagia [Unknown]
